FAERS Safety Report 4738231-3 (Version None)
Quarter: 2005Q3

REPORT INFORMATION
  Report Type: 
  Country: None (occurrence: None)
  Receive Date: 20050809
  Receipt Date: 20050729
  Transmission Date: 20060218
  Serious: Yes (Hospitalization)
  Sender: FDA-Public Use
  Company Number: 200512232JP

PATIENT
  Age: 72 Year
  Sex: Male

DRUGS (5)
  1. KETEK [Suspect]
     Indication: PNEUMONIA
     Dosage: DOSE: ONCE 600 MG
     Route: 048
     Dates: start: 20050725, end: 20050728
  2. NORVASC [Concomitant]
     Indication: HYPERTENSION
     Route: 048
     Dates: start: 20040101
  3. ASPIRIN [Concomitant]
     Indication: HYPERTENSION
     Route: 048
     Dates: start: 20040101
  4. BLOPRESS [Concomitant]
     Indication: HYPERTENSION
     Route: 048
     Dates: start: 20040101
  5. ANTIPSYCHOTICS [Concomitant]
     Indication: DEMENTIA ALZHEIMER'S TYPE
     Dates: start: 20040101

REACTIONS (3)
  - FACIAL BONES FRACTURE [None]
  - LOSS OF CONSCIOUSNESS [None]
  - MUSCULAR WEAKNESS [None]
